FAERS Safety Report 4643044-7 (Version None)
Quarter: 2005Q2

REPORT INFORMATION
  Report Type: 
  Country: None (occurrence: None)
  Receive Date: 20050421
  Receipt Date: 20050217
  Transmission Date: 20051028
  Serious: Yes (Hospitalization)
  Sender: FDA-Public Use
  Company Number: 2005030141

PATIENT
  Age: 81 Year
  Sex: Female

DRUGS (7)
  1. NEURONTIN [Suspect]
     Indication: TRIGEMINAL NEURALGIA
     Dosage: 1800 MG (600 MG, 3 IN 1 D), ORAL
     Route: 048
     Dates: start: 20040601
  2. CARBAMAZEPINE [Suspect]
     Indication: ILL-DEFINED DISORDER
  3. BUPRENORPHINE HCL [Suspect]
     Indication: ILL-DEFINED DISORDER
     Dosage: 0.6 MG (0.2 MG, 3 IN 1 D), ORAL
     Route: 048
  4. IBUPROFEN [Concomitant]
  5. DYAZIDE [Concomitant]
  6. RISEDRONATE SODIUM (RISEDRONATE SODIUM) [Concomitant]
  7. CALCIUM (CALCIUM) [Concomitant]

REACTIONS (1)
  - ANAPHYLACTIC REACTION [None]
